FAERS Safety Report 6391609-7 (Version None)
Quarter: 2009Q4

REPORT INFORMATION
  Report Type: 
  Country: None (occurrence: None)
  Receive Date: 20091007
  Receipt Date: 20091006
  Transmission Date: 20100525
  Serious: Yes (Hospitalization, Other)
  Sender: FDA-Public Use
  Company Number: US-TEVA-207203USA

PATIENT
  Sex: Female
  Weight: 49.94 kg

DRUGS (2)
  1. SALBUTAMOL SULFATE INHALATION, 0.09 MG [Suspect]
     Indication: ASTHMA
     Dosage: AS NEEDED
     Route: 055
     Dates: start: 20081201, end: 20090504
  2. SERETIDE [Concomitant]
     Indication: ASTHMA

REACTIONS (3)
  - ASTHMA [None]
  - DRUG INEFFECTIVE [None]
  - RESPIRATORY ARREST [None]
